FAERS Safety Report 11804720 (Version 2)
Quarter: 2015Q4

REPORT INFORMATION
  Report Type: Spontaneous
  Country: RO (occurrence: RO)
  Receive Date: 20151205
  Receipt Date: 20151210
  Transmission Date: 20160305
  Serious: Yes (Other)
  Sender: FDA-Public Use
  Company Number: RO-AMGEN-ROUSP2015129168

PATIENT
  Age: 72 Year
  Sex: Male
  Weight: 96 kg

DRUGS (8)
  1. HERBAL EXTRACT NOS [Concomitant]
     Active Substance: HERBALS
     Dosage: UNK
     Dates: start: 2011
  2. NEBILET [Concomitant]
     Active Substance: NEBIVOLOL
     Dosage: 10 MG, DAILY
     Dates: start: 201510
  3. LIV 52                             /06293501/ [Concomitant]
     Dosage: UNK
     Dates: start: 2011
  4. SORTIS [Concomitant]
     Active Substance: ATORVASTATIN
     Dosage: 40 MG, DAILY
     Dates: start: 201510
  5. CORLENTOR [Suspect]
     Active Substance: IVABRADINE HYDROCHLORIDE
     Dosage: 7.5 MG, QD
     Route: 048
     Dates: start: 20151203, end: 20151203
  6. MAGNESIUM [Suspect]
     Active Substance: MAGNESIUM
     Indication: CARDIAC FAILURE CHRONIC
     Dosage: 535 MG, QD
     Route: 048
     Dates: start: 20151125, end: 20151125
  7. CORLENTOR [Suspect]
     Active Substance: IVABRADINE HYDROCHLORIDE
     Indication: CARDIAC FAILURE CHRONIC
     Dosage: 7.5 MG, QD
     Route: 048
     Dates: start: 20151125, end: 20151125
  8. AVODART [Concomitant]
     Active Substance: DUTASTERIDE
     Dosage: 0.5 MG, DAILY
     Dates: start: 201510

REACTIONS (3)
  - Swollen tongue [Recovered/Resolved]
  - Palpitations [Recovered/Resolved]
  - Swelling face [Recovered/Resolved]

NARRATIVE: CASE EVENT DATE: 20151125
